FAERS Safety Report 25793797 (Version 4)
Quarter: 2025Q4

REPORT INFORMATION
  Report Type: Spontaneous
  Country: CA (occurrence: CA)
  Receive Date: 20250912
  Receipt Date: 20251025
  Transmission Date: 20260117
  Serious: Yes (Other)
  Sender: CELLTRION
  Company Number: CA-PFIZER INC-202500174634

PATIENT

DRUGS (3)
  1. INFLECTRA [Suspect]
     Active Substance: INFLIXIMAB-DYYB
     Indication: Crohn^s disease
     Dosage: 500 MG, INDUCTION AY Q 0,2,6 THEN EVERY 8 WEEKS
     Route: 042
     Dates: start: 20230823, end: 20240124
  2. INFLECTRA [Suspect]
     Active Substance: INFLIXIMAB-DYYB
     Dosage: 1000 MG EVERY 6 WEEKS
     Route: 042
     Dates: start: 20240306
  3. INFLECTRA [Suspect]
     Active Substance: INFLIXIMAB-DYYB
     Dosage: 1000 MG,EVERY 6 WEEK(INDUCTION AY Q 0,2,6 THEN EVERY 8 WEEKS)
     Route: 042
     Dates: start: 20250723

REACTIONS (2)
  - Back pain [Unknown]
  - Infection [Unknown]

NARRATIVE: CASE EVENT DATE: 20250101
